FAERS Safety Report 9734520 (Version 6)
Quarter: 2015Q3

REPORT INFORMATION
  Report Type: Spontaneous
  Country: US (occurrence: US)
  Receive Date: 20131206
  Receipt Date: 20150826
  Transmission Date: 20151125
  Serious: No
  Sender: FDA-Public Use
  Company Number: US-BIOGENIDEC-2013BI037013

PATIENT
  Age: 74 Year
  Sex: Male
  Weight: 83 kg

DRUGS (11)
  1. AMPYRA [Concomitant]
     Active Substance: DALFAMPRIDINE
     Indication: GAIT DISTURBANCE
     Route: 048
     Dates: start: 20121102, end: 20130626
  2. ASPIRIN. [Concomitant]
     Active Substance: ASPIRIN
  3. VITAMIN E [Concomitant]
     Active Substance: .ALPHA.-TOCOPHEROL
  4. VITAMIN C [Concomitant]
     Active Substance: ASCORBIC ACID
  5. AVONEX [Suspect]
     Active Substance: INTERFERON BETA-1A
     Indication: MULTIPLE SCLEROSIS
     Route: 030
     Dates: end: 201305
  6. VITAMIN D3 [Concomitant]
     Active Substance: CHOLECALCIFEROL
  7. TYLENOL PM EXTRA STRENGTH [Concomitant]
     Active Substance: ACETAMINOPHEN\DIPHENHYDRAMINE HYDROCHLORIDE
  8. AVONEX [Suspect]
     Active Substance: INTERFERON BETA-1A
     Indication: MULTIPLE SCLEROSIS
     Route: 030
     Dates: start: 20121121, end: 20130212
  9. AMPYRA [Concomitant]
     Active Substance: DALFAMPRIDINE
     Indication: GAIT DISTURBANCE
     Dates: start: 2013
  10. CENTRUM SILVER [Concomitant]
     Active Substance: VITAMINS
  11. AVONEX [Suspect]
     Active Substance: INTERFERON BETA-1A
     Indication: MULTIPLE SCLEROSIS
     Route: 030
     Dates: start: 20130211, end: 20130401

REACTIONS (11)
  - General symptom [Unknown]
  - Memory impairment [Unknown]
  - Influenza [Recovered/Resolved]
  - Paraesthesia [Not Recovered/Not Resolved]
  - Influenza like illness [Recovered/Resolved]
  - Drug ineffective [Unknown]
  - Hemiparesis [Not Recovered/Not Resolved]
  - Muscular weakness [Not Recovered/Not Resolved]
  - Adverse drug reaction [Unknown]
  - Time perception altered [Not Recovered/Not Resolved]
  - Multiple sclerosis [Not Recovered/Not Resolved]

NARRATIVE: CASE EVENT DATE: 201211
